FAERS Safety Report 5202307-7 (Version None)
Quarter: 2007Q1

REPORT INFORMATION
  Report Type: 
  Country: None (occurrence: None)
  Receive Date: 20070109
  Receipt Date: 20061229
  Transmission Date: 20070707
  Serious: Yes (Other)
  Sender: FDA-Public Use
  Company Number: US-ELI_LILLY_AND_COMPANY-US200612004640

PATIENT
  Sex: Male

DRUGS (2)
  1. FORTEO [Suspect]
     Dosage: UNK, UNKNOWN
     Dates: start: 20061217
  2. OXYCODONE HCL [Concomitant]
     Indication: PAIN
     Dosage: UNK, UNKNOWN

REACTIONS (4)
  - BACK PAIN [None]
  - LOSS OF CONSCIOUSNESS [None]
  - PAIN [None]
  - SLEEP WALKING [None]
